FAERS Safety Report 6702482-9 (Version None)
Quarter: 2010Q2

REPORT INFORMATION
  Report Type: 
  Country: None (occurrence: None)
  Receive Date: 20100429
  Receipt Date: 20100422
  Transmission Date: 20101027
  Serious: Yes (Hospitalization)
  Sender: FDA-Public Use
  Company Number: B0650169A

PATIENT
  Age: 44 Year
  Sex: Male

DRUGS (4)
  1. EPIVIR [Suspect]
     Indication: ANTIRETROVIRAL THERAPY
     Route: 048
     Dates: start: 20050713, end: 20090703
  2. VIREAD [Suspect]
     Indication: DRUG USE FOR UNKNOWN INDICATION
     Dosage: 245MG PER DAY
     Route: 048
     Dates: start: 20050713, end: 20090703
  3. SUSTIVA [Suspect]
     Indication: DRUG USE FOR UNKNOWN INDICATION
     Route: 048
     Dates: start: 20050713, end: 20090703
  4. SEPTRIN FORTE [Concomitant]

REACTIONS (6)
  - FANCONI SYNDROME [None]
  - HYPOPHOSPHATAEMIA [None]
  - NEPHROLITHIASIS [None]
  - PSEUDOMEMBRANOUS COLITIS [None]
  - RENAL TUBULAR NECROSIS [None]
  - SEPTIC SHOCK [None]
